FAERS Safety Report 4922521-5 (Version None)
Quarter: 2006Q1

REPORT INFORMATION
  Report Type: 
  Country: None (occurrence: None)
  Receive Date: 20060224
  Receipt Date: 20060213
  Transmission Date: 20060701
  Serious: Yes (Hospitalization)
  Sender: FDA-Public Use
  Company Number: AU-ROCHE-435939

PATIENT
  Age: 34 Year
  Sex: Female
  Weight: 59 kg

DRUGS (5)
  1. CELLCEPT [Suspect]
     Indication: DRUG USE FOR UNKNOWN INDICATION
     Route: 048
     Dates: start: 20040226
  2. BACTRIM [Suspect]
     Indication: DRUG USE FOR UNKNOWN INDICATION
     Route: 048
     Dates: start: 20040226
  3. RAPAMUNE [Suspect]
     Indication: DRUG USE FOR UNKNOWN INDICATION
     Route: 048
     Dates: start: 20040226
  4. ASPIRIN [Concomitant]
  5. SLOW-K [Concomitant]
     Route: 048

REACTIONS (6)
  - DIARRHOEA [None]
  - LETHARGY [None]
  - NAUSEA [None]
  - PYREXIA [None]
  - TUBERCULOSIS [None]
  - VOMITING [None]
